FAERS Safety Report 5473539-8 (Version None)
Quarter: 2007Q4

REPORT INFORMATION
  Report Type: 
  Country: None (occurrence: None)
  Receive Date: 20071001
  Receipt Date: 20070417
  Transmission Date: 20080405
  Serious: No
  Sender: FDA-Public Use
  Company Number: US-ASTRAZENECA-2007UW07511

PATIENT
  Age: 69 Year
  Sex: Female

DRUGS (3)
  1. ARIMIDEX [Suspect]
     Route: 048
  2. RADIATION [Concomitant]
  3. SYNTHROID [Concomitant]

REACTIONS (2)
  - RASH [None]
  - STOMATITIS [None]
